FAERS Safety Report 5638386-2 (Version None)
Quarter: 2008Q1

REPORT INFORMATION
  Report Type: 
  Country: None (occurrence: None)
  Receive Date: 20080131
  Receipt Date: 20071031
  Transmission Date: 20080703
  Serious: No
  Sender: FDA-Public Use
  Company Number: 163-21880-07110082

PATIENT
  Age: 70 Year
  Sex: Female

DRUGS (3)
  1. REVLIMID [Suspect]
     Indication: MULTIPLE MYELOMA
     Dosage: 5 MG, DAILY X 21 DAYS, ORAL; 10 MG, DAILY X 21 DAYS, ORAL ; 25 MG, DAILY X 21 DAYS, ORAL
     Route: 048
     Dates: start: 20070427, end: 20070101
  2. REVLIMID [Suspect]
     Indication: MULTIPLE MYELOMA
     Dosage: 5 MG, DAILY X 21 DAYS, ORAL; 10 MG, DAILY X 21 DAYS, ORAL ; 25 MG, DAILY X 21 DAYS, ORAL
     Route: 048
     Dates: start: 20070712, end: 20070801
  3. REVLIMID [Suspect]
     Indication: MULTIPLE MYELOMA
     Dosage: 5 MG, DAILY X 21 DAYS, ORAL; 10 MG, DAILY X 21 DAYS, ORAL ; 25 MG, DAILY X 21 DAYS, ORAL
     Route: 048
     Dates: start: 20070810

REACTIONS (2)
  - GASTROINTESTINAL DISORDER [None]
  - HEADACHE [None]
